FAERS Safety Report 18279894 (Version 4)
Quarter: 2020Q4

REPORT INFORMATION
  Report Type: Spontaneous
  Country: CO (occurrence: CO)
  Receive Date: 20200918
  Receipt Date: 20201209
  Transmission Date: 20210113
  Serious: Yes (Hospitalization)
  Sender: FDA-Public Use
  Company Number: CO-AMGEN-COLSP2020079112

PATIENT
  Age: 78 Year
  Sex: Female
  Weight: 65 kg

DRUGS (15)
  1. MVASI [Suspect]
     Active Substance: BEVACIZUMAB-AWWB
     Indication: GLIOBLASTOMA MULTIFORME
  2. CARVEDILOL. [Concomitant]
     Active Substance: CARVEDILOL
     Indication: AORTIC VALVE INCOMPETENCE
     Dosage: 6.25 MILLIGRAM, Q12H
     Route: 048
     Dates: start: 20200730
  3. LOSARTAN. [Concomitant]
     Active Substance: LOSARTAN
     Indication: ESSENTIAL HYPERTENSION
     Dosage: 50 MILLIGRAM, Q12H
     Route: 048
     Dates: start: 20200730
  4. TEMOZOLOMIDE. [Concomitant]
     Active Substance: TEMOZOLOMIDE
     Indication: BRAIN NEOPLASM MALIGNANT
     Dosage: 50 MILLIGRAM, VO DAY FROM MONDAY TO FRIDAY
     Dates: start: 2019
  5. LEVOTHYROXINE. [Concomitant]
     Active Substance: LEVOTHYROXINE
     Dosage: 50 MICROGRAM, EVERY 48HRS
     Route: 048
  6. AMLODIPINE [Concomitant]
     Active Substance: AMLODIPINE BESYLATE
     Indication: ESSENTIAL HYPERTENSION
     Dosage: 5 MILLIGRAM, QD
     Route: 048
     Dates: start: 20200730
  7. AMLODIPINE [Concomitant]
     Active Substance: AMLODIPINE BESYLATE
     Indication: HYPERTENSION
  8. LOSARTAN. [Concomitant]
     Active Substance: LOSARTAN
     Indication: HYPERTENSION
  9. MVASI [Suspect]
     Active Substance: BEVACIZUMAB-AWWB
     Indication: GLIAL SCAR
     Dosage: 600 MILLIGRAM, QD
     Route: 042
     Dates: start: 20200508
  10. LEVOTHYROXINE. [Concomitant]
     Active Substance: LEVOTHYROXINE
     Indication: HYPOTHYROIDISM
     Dosage: 75 MICROGRAM, QD
     Route: 048
  11. LEVOTHYROXINE. [Concomitant]
     Active Substance: LEVOTHYROXINE
     Dosage: 100 MICROGRAM, EVERY 48HRS
     Route: 048
     Dates: start: 20200730
  12. ATORVASTATIN [Concomitant]
     Active Substance: ATORVASTATIN
     Indication: HYPERLIPIDAEMIA
     Dosage: 10 MILLIGRAM, QD
     Route: 048
     Dates: start: 20200730
  13. CARVEDILOL. [Concomitant]
     Active Substance: CARVEDILOL
     Indication: HYPERTENSION
  14. PANTOPRAZOLE [Concomitant]
     Active Substance: PANTOPRAZOLE
     Indication: GASTROOESOPHAGEAL REFLUX DISEASE
     Dosage: 20 MILLIGRAM, QD
     Route: 048
     Dates: start: 20200730
  15. MVASI [Suspect]
     Active Substance: BEVACIZUMAB-AWWB
     Indication: BRAIN NEOPLASM MALIGNANT
     Dosage: 600 MILLIGRAM, QD
     Route: 042
     Dates: start: 20200325

REACTIONS (5)
  - Hypotension [Recovered/Resolved]
  - Asthenia [Unknown]
  - Oxygen saturation decreased [Recovered/Resolved]
  - Nausea [Unknown]
  - Off label use [Unknown]

NARRATIVE: CASE EVENT DATE: 20200325
